FAERS Safety Report 8428247-8 (Version None)
Quarter: 2012Q2

REPORT INFORMATION
  Report Type: 
  Country: None (occurrence: None)
  Receive Date: 20120611
  Receipt Date: 20110927
  Transmission Date: 20120825
  Serious: No
  Sender: FDA-Public Use
  Company Number: US-ASTRAZENECA-2011SE18998

PATIENT
  Age: 61 Year
  Sex: Female
  Weight: 58.1 kg

DRUGS (24)
  1. PHENERGAN [Concomitant]
  2. NEXIUM [Suspect]
     Route: 048
  3. ATENOLOL [Concomitant]
     Indication: BLOOD PRESSURE
  4. ASTELIN [Concomitant]
  5. LIDODERM [Concomitant]
  6. AMOXIL/CLAVULANIC [Concomitant]
     Indication: INFECTION
  7. AMITRIPTLINE HYDROCHLORIDE TAB [Concomitant]
     Indication: SLEEP DISORDER
  8. CELEBREX [Concomitant]
  9. HUMUBID [Concomitant]
  10. GABAPENTIN [Concomitant]
  11. GUAIFENESIN [Concomitant]
  12. CYCLOBENZAPRINE [Concomitant]
     Indication: MUSCLE SPASMS
  13. SINGULAIR [Concomitant]
     Indication: WHEEZING
  14. FAMOTIDINE [Concomitant]
  15. CALCIUM [Concomitant]
  16. MSM [Concomitant]
  17. ALBUTEROL [Concomitant]
     Indication: ASTHMA
  18. FLUNISOLIDE [Concomitant]
  19. EPIPEN [Concomitant]
  20. CERTRAZINE [Concomitant]
  21. DICYCLOMINE [Concomitant]
  22. VITAMIN D [Concomitant]
  23. PULMICORT [Suspect]
     Indication: ASTHMA
     Route: 055
  24. BENADRYL [Concomitant]

REACTIONS (10)
  - DIARRHOEA [None]
  - WHEEZING [None]
  - SOMNOLENCE [None]
  - MUSCLE SPASMS [None]
  - SKIN FISSURES [None]
  - BLOOD CALCIUM INCREASED [None]
  - INFECTION [None]
  - SINUSITIS [None]
  - WEIGHT DECREASED [None]
  - PEAK EXPIRATORY FLOW RATE DECREASED [None]
